FAERS Safety Report 9511766 (Version 1)
Quarter: 2013Q1

REPORT INFORMATION
  Report Type: Spontaneous
  Country: US (occurrence: None)
  Receive Date: 20130305
  Receipt Date: 20130305
  Transmission Date: 20140127
  Serious: Yes (Other)
  Sender: FDA-Public Use
  Company Number: 163-21880-12052174

PATIENT
  Age: 85 Year
  Sex: Female
  Weight: 49.53 kg

DRUGS (9)
  1. REVLIMID [Suspect]
     Indication: PLASMA CELL MYELOMA
     Dosage: 10 MG, QD D 1-21, PO
     Route: 048
     Dates: start: 20120502
  2. ATIVAN (LORAZEPAM) (UNKNOWN) [Concomitant]
  3. TYLENOL (PARACETAMOL) (UNKNOWN) [Concomitant]
  4. MOM (MAGNESIUM HYDROXIDE) (UNKNOWN) [Concomitant]
  5. TIMOLOL (TIMOLOL) (UNKNOWN) [Concomitant]
  6. POLYVINYL (TETRYZOLINE HYDROCHLORIDE) (DROPS) [Concomitant]
  7. HCTZ (HYDROCHLOROTHIAZIDE) (UNKNOWN) [Concomitant]
  8. COUMADIN (WARFARIN SODIUM) (UNKNOWN) [Concomitant]
  9. MOBIC (MELOXICAM) (UNKNOWN0 [Concomitant]

REACTIONS (4)
  - Anaemia [None]
  - White blood cell count decreased [None]
  - Neutrophil count decreased [None]
  - Infection [None]
